FAERS Safety Report 9061607 (Version 1)
Quarter: 2013Q1

REPORT INFORMATION
  Report Type: Spontaneous
  Country: US (occurrence: None)
  Receive Date: 20130118
  Receipt Date: 20130118
  Transmission Date: 20140127
  Serious: Yes (Hospitalization, Other)
  Sender: FDA-Public Use
  Company Number: 2013AP000046

PATIENT
  Age: 29 Year
  Sex: Female

DRUGS (6)
  1. GABAPENTIN [Suspect]
     Indication: OVERDOSE
     Route: 048
  2. GABAPENTIN [Suspect]
     Indication: MOVEMENT DISORDER
     Route: 048
  3. BUPROPION HYDROCHLORIDE [Suspect]
  4. AMFETAMINE [Concomitant]
  5. DEXAMFETAMINE [Concomitant]
  6. LAXATIVES [Concomitant]

REACTIONS (11)
  - Unresponsive to stimuli [None]
  - Metabolic acidosis [None]
  - Hypotension [None]
  - Grand mal convulsion [None]
  - Sinus tachycardia [None]
  - Mental status changes [None]
  - Electrocardiogram QT prolonged [None]
  - Cardiogenic shock [None]
  - Overdose [None]
  - Electroencephalogram abnormal [None]
  - Brain death [None]
